FAERS Safety Report 5578846-6 (Version None)
Quarter: 2007Q4

REPORT INFORMATION
  Report Type: 
  Country: None (occurrence: None)
  Receive Date: 20071228
  Receipt Date: 20071220
  Transmission Date: 20080405
  Serious: Yes (Hospitalization)
  Sender: FDA-Public Use
  Company Number: SC-GLYCO-06-01

PATIENT
  Age: 18 Year
  Sex: Female
  Weight: 24.0406 kg

DRUGS (18)
  1. GLYCOPYRROLATE [Suspect]
     Indication: DROOLING
     Dosage: 12.5 ML TID, PO
     Route: 048
     Dates: start: 20070813, end: 20071214
  2. DANTROLENE SODIUM [Concomitant]
  3. ZANTAC [Concomitant]
  4. CLONIDINE [Concomitant]
  5. BACLOFEN [Concomitant]
  6. REGLAN [Concomitant]
  7. CARNITINE (CARNITINE) [Concomitant]
  8. FOSAMAX [Concomitant]
  9. MIRALAX [Concomitant]
  10. RHINOCORT [Concomitant]
  11. DEPAKOTE (VALPROATE SEMISODIUM) (1000 MG) [Concomitant]
  12. CARBATROL [Concomitant]
  13. ALEVE [Concomitant]
  14. MUCINEX (QUAIFENESIN) [Concomitant]
  15. AQUAPHOR (EUCERIN CRME) [Concomitant]
  16. VALIUM [Concomitant]
  17. SODIUM PHOSPHATES [Concomitant]
  18. DULCOLAX [Concomitant]

REACTIONS (9)
  - DISCOMFORT [None]
  - LYMPHOCYTE PERCENTAGE INCREASED [None]
  - OXYGEN SATURATION DECREASED [None]
  - PYREXIA [None]
  - RESTLESSNESS [None]
  - SINUS TACHYCARDIA [None]
  - URINARY TRACT INFECTION ENTEROCOCCAL [None]
  - URINARY TRACT INFECTION STAPHYLOCOCCAL [None]
  - WHITE BLOOD CELL COUNT INCREASED [None]
